FAERS Safety Report 19376960 (Version 3)
Quarter: 2021Q4

REPORT INFORMATION
  Report Type: Spontaneous
  Country: US (occurrence: US)
  Receive Date: 20210604
  Receipt Date: 20211118
  Transmission Date: 20220303
  Serious: No
  Sender: FDA-Public Use
  Company Number: US-PFIZER INC-2021404165

PATIENT
  Age: 61 Year
  Sex: Male
  Weight: 120.18 kg

DRUGS (1)
  1. LYRICA [Suspect]
     Active Substance: PREGABALIN
     Indication: Pain
     Dosage: 100 MG, 3X/DAY
     Dates: start: 2017

REACTIONS (4)
  - Pain in extremity [Unknown]
  - Fatigue [Unknown]
  - Hypersensitivity [Unknown]
  - Product dose omission issue [Unknown]
